FAERS Safety Report 9775567 (Version 1)
Quarter: 2013Q4

REPORT INFORMATION
  Report Type: Spontaneous
  Country: US (occurrence: US)
  Receive Date: 20131220
  Receipt Date: 20131220
  Transmission Date: 20140711
  Serious: No
  Sender: FDA-Public Use
  Company Number: US-BAYER-2013-155515

PATIENT
  Sex: Male

DRUGS (2)
  1. ALEVE CAPLET [Suspect]
     Dosage: 4 DF, UNK
  2. ADVIL [Suspect]
     Dosage: 2 DF, UNK

REACTIONS (1)
  - Drug ineffective [None]
